FAERS Safety Report 5299307-8 (Version None)
Quarter: 2007Q2

REPORT INFORMATION
  Report Type: 
  Country: None (occurrence: None)
  Receive Date: 20070410
  Receipt Date: 20061115
  Transmission Date: 20071010
  Serious: Yes (Death)
  Sender: FDA-Public Use
  Company Number: BDI-008859

PATIENT
  Age: 83 Year
  Sex: Male

DRUGS (5)
  1. ISOVUE-300 [Suspect]
     Indication: ABDOMINAL PAIN
     Dosage: 100 ML ONCE IV
     Route: 042
     Dates: start: 20061114, end: 20061114
  2. ISOVUE-300 [Suspect]
     Indication: COMPUTERISED TOMOGRAM ABDOMEN
     Dosage: 100 ML ONCE IV
     Route: 042
     Dates: start: 20061114, end: 20061114
  3. COUMADIN [Concomitant]
  4. LIPITOR /01326101/ [Concomitant]
  5. METAPREL [Concomitant]

REACTIONS (5)
  - AORTIC ANEURYSM [None]
  - AORTIC RUPTURE [None]
  - CARDIO-RESPIRATORY ARREST [None]
  - EXTRAVASATION [None]
  - EYE ROLLING [None]
